FAERS Safety Report 9011285 (Version 1)
Quarter: 2013Q1

REPORT INFORMATION
  Report Type: Spontaneous
  Country: US (occurrence: US)
  Receive Date: 20130109
  Receipt Date: 20130109
  Transmission Date: 20140127
  Serious: Yes (Hospitalization, Other)
  Sender: FDA-Public Use
  Company Number: US-009507513-1301USA001622

PATIENT
  Age: 44 Year
  Sex: Male

DRUGS (6)
  1. SINGULAIR [Suspect]
     Dosage: 10 MG, QD
     Route: 048
  2. TEGRETOL [Suspect]
     Indication: EPILEPSY
     Dosage: 400 MG, TID
     Route: 048
  3. DESLORATADINE [Suspect]
     Indication: RHINITIS
     Dosage: 5 MG, QD
     Route: 048
  4. KENZEN [Suspect]
     Dosage: 4 MG, QD
     Route: 048
  5. URBANYL [Suspect]
     Dosage: 5 MG, QD
     Route: 048
  6. DEPAKENE [Suspect]
     Dosage: 500 MG, TID
     Route: 048

REACTIONS (15)
  - Vomiting [Unknown]
  - Transaminases increased [Unknown]
  - Salivary hypersecretion [Unknown]
  - Rhinitis [Unknown]
  - Photophobia [Unknown]
  - Miosis [Unknown]
  - Hypothermia [Unknown]
  - Hyperhidrosis [Unknown]
  - Headache [Unknown]
  - Gamma-glutamyltransferase increased [Unknown]
  - Dizziness [Unknown]
  - Cholinergic syndrome [Unknown]
  - Bradycardia [Unknown]
  - Aspartate aminotransferase increased [Unknown]
  - Alanine aminotransferase increased [Unknown]
